FAERS Safety Report 15323841 (Version 11)
Quarter: 2020Q1

REPORT INFORMATION
  Report Type: Spontaneous
  Country: CA (occurrence: CA)
  Receive Date: 20180828
  Receipt Date: 20200120
  Transmission Date: 20200409
  Serious: Yes (Other)
  Sender: FDA-Public Use
  Company Number: CA-CELLTRION INC.-2018CA021509

PATIENT

DRUGS (19)
  1. INFLECTRA [Suspect]
     Active Substance: INFLIXIMAB-DYYB
     Dosage: 520 MG, AT 0, 2, 6 WEEKS, THEN EVERY 8 WEEKS
     Route: 042
     Dates: start: 20190918
  2. CORTIFOAM [Concomitant]
     Active Substance: HYDROCORTISONE ACETATE
     Dosage: UNK, AS NEEDED
     Route: 054
     Dates: start: 2017
  3. CITALOPRAM [Concomitant]
     Active Substance: CITALOPRAM HYDROBROMIDE
     Dosage: 20 MG, DAILY
     Route: 048
  4. INFLECTRA [Suspect]
     Active Substance: INFLIXIMAB-DYYB
     Dosage: 526 MG, WEEKS 0, 2, 6 AND EVERY 8 WEEKS THEREAFTER
     Route: 042
     Dates: start: 20181017
  5. TIAZAC XC [Concomitant]
     Active Substance: DILTIAZEM HYDROCHLORIDE
     Dosage: 120 MG, 1X/DAY (AT HOUR OF SLEEP)
     Route: 048
  6. INFLECTRA [Suspect]
     Active Substance: INFLIXIMAB-DYYB
     Indication: COLITIS ULCERATIVE
     Dosage: 526 MG, WEEKS 0, 2, 6 AND EVERY 8 WEEKS THEREAFTER
     Route: 042
     Dates: start: 20180709, end: 20190403
  7. INFLECTRA [Suspect]
     Active Substance: INFLIXIMAB-DYYB
     Dosage: 526 MG, WEEKS 0, 2, 6 AND EVERY 8 WEEKS THEREAFTER
     Route: 042
     Dates: start: 20190208, end: 20190208
  8. INFLECTRA [Suspect]
     Active Substance: INFLIXIMAB-DYYB
     Dosage: 520 MG, AT 0, 2, 6 WEEKS, THEN EVERY 8 WEEKS
     Route: 042
     Dates: start: 20190724
  9. INFLECTRA [Suspect]
     Active Substance: INFLIXIMAB-DYYB
     Dosage: 526 MG, WEEKS 0, 2, 6 AND EVERY 8 WEEKS THEREAFTER
     Route: 042
     Dates: start: 20180725
  10. PREDNISONE. [Concomitant]
     Active Substance: PREDNISONE
     Dosage: UNK
     Dates: end: 201811
  11. INFLECTRA [Suspect]
     Active Substance: INFLIXIMAB-DYYB
     Dosage: 526 MG, WEEKS 0, 2, 6 AND EVERY 8 WEEKS THEREAFTER
     Route: 042
     Dates: start: 20181228
  12. INFLECTRA [Suspect]
     Active Substance: INFLIXIMAB-DYYB
     Dosage: 520 MG, AT 0, 2, 6 WEEKS, THEN EVERY 8 WEEKS
     Route: 042
     Dates: start: 20200108
  13. PRAVASTATIN. [Concomitant]
     Active Substance: PRAVASTATIN
     Dosage: 20 MG, DAILY
     Route: 048
  14. ELTROXIN [Concomitant]
     Active Substance: LEVOTHYROXINE
     Dosage: 0.5 MG, DAILY
     Route: 048
  15. INFLECTRA [Suspect]
     Active Substance: INFLIXIMAB-DYYB
     Dosage: 526 MG, WEEKS 0, 2, 6 AND EVERY 8 WEEKS THEREAFTER
     Route: 042
     Dates: start: 20190403, end: 20190403
  16. INFLECTRA [Suspect]
     Active Substance: INFLIXIMAB-DYYB
     Dosage: 526 MG, WEEKS 0, 2, 6 AND EVERY 8 WEEKS THEREAFTER
     Route: 042
     Dates: start: 20180822
  17. INFLECTRA [Suspect]
     Active Substance: INFLIXIMAB-DYYB
     Dosage: 520 MG, AT 0, 2, 6 WEEKS, THEN EVERY 8 WEEKS
     Route: 042
     Dates: start: 20190529, end: 20190529
  18. LYRICA [Concomitant]
     Active Substance: PREGABALIN
     Dosage: 50 MG, 1X/DAY
     Route: 065
  19. AZATHIOPRINE. [Concomitant]
     Active Substance: AZATHIOPRINE
     Dosage: 50 MG, DAILY
     Route: 048
     Dates: start: 2017

REACTIONS (12)
  - Stress [Unknown]
  - Productive cough [Unknown]
  - Off label use [Unknown]
  - Product use issue [Unknown]
  - Oropharyngeal pain [Recovering/Resolving]
  - Gastric disorder [Unknown]
  - Off label use [Not Recovered/Not Resolved]
  - Blood pressure fluctuation [Not Recovered/Not Resolved]
  - Cough [Recovering/Resolving]
  - Product use issue [Not Recovered/Not Resolved]
  - Condition aggravated [Recovered/Resolved]
  - Malaise [Recovering/Resolving]

NARRATIVE: CASE EVENT DATE: 20180709
